FAERS Safety Report 10590212 (Version 1)
Quarter: 2014Q4

REPORT INFORMATION
  Report Type: Spontaneous
  Country: US (occurrence: None)
  Receive Date: 20141117
  Receipt Date: 20141117
  Transmission Date: 20150529
  Serious: Yes (Other)
  Sender: FDA-Public Use
  Company Number: None

PATIENT
  Age: 70 Year
  Sex: Male
  Weight: 77.57 kg

DRUGS (1)
  1. PROLIA [Suspect]
     Active Substance: DENOSUMAB
     Dosage: ONE INJECTION

REACTIONS (6)
  - Constipation [None]
  - Insomnia [None]
  - Hepatic neoplasm [None]
  - Chest pain [None]
  - Aspartate aminotransferase increased [None]
  - Fatigue [None]
